FAERS Safety Report 23483291 (Version 1)
Quarter: 2024Q1

REPORT INFORMATION
  Report Type: Spontaneous
  Country: CA (occurrence: CA)
  Receive Date: 20240205
  Receipt Date: 20240205
  Transmission Date: 20240409
  Serious: Yes (Other)
  Sender: FDA-Public Use
  Company Number: CA-FreseniusKabi-FK202401820

PATIENT

DRUGS (1)
  1. HYDROMORPHONE HYDROCHLORIDE [Suspect]
     Active Substance: HYDROMORPHONE HYDROCHLORIDE
     Indication: Product used for unknown indication
     Dosage: DOSAGE FORM: SOLUTION INTRAMUSCULAR
     Route: 042

REACTIONS (5)
  - Adverse drug reaction [Unknown]
  - Drug administered in wrong device [Unknown]
  - Incorrect product administration duration [Unknown]
  - Product dispensing error [Unknown]
  - Wrong product administered [Unknown]
